FAERS Safety Report 23400607 (Version 3)
Quarter: 2024Q2

REPORT INFORMATION
  Report Type: Spontaneous
  Country: US (occurrence: US)
  Receive Date: 20240115
  Receipt Date: 20240409
  Transmission Date: 20240716
  Serious: Yes (Other)
  Sender: FDA-Public Use
  Company Number: US-BRISTOL-MYERS SQUIBB COMPANY-2024-005755

PATIENT
  Age: 55 Year
  Sex: Female

DRUGS (1)
  1. ORENCIA [Suspect]
     Active Substance: ABATACEPT
     Indication: Rheumatoid arthritis
     Route: 058
     Dates: start: 202206

REACTIONS (8)
  - Actinic keratosis [Unknown]
  - Wheezing [Unknown]
  - Pulmonary congestion [Unknown]
  - Rheumatoid arthritis [Unknown]
  - Back disorder [Unknown]
  - Gait inability [Unknown]
  - Malaise [Unknown]
  - General physical health deterioration [Unknown]
